FAERS Safety Report 7264360-9 (Version None)
Quarter: 2011Q1

REPORT INFORMATION
  Report Type: 
  Country: None (occurrence: None)
  Receive Date: 20110131
  Receipt Date: 20110121
  Transmission Date: 20110831
  Serious: Yes (Other)
  Sender: FDA-Public Use
  Company Number: US-BIOGENIDEC-2010BI039607

PATIENT
  Age: 39 Year
  Sex: Female

DRUGS (7)
  1. CLOZAPINE [Concomitant]
  2. INDERAL [Concomitant]
  3. AMPYRA [Concomitant]
     Indication: MULTIPLE SCLEROSIS
     Dates: start: 20100901, end: 20100101
  4. AMBIEN [Concomitant]
  5. VESICARE [Concomitant]
  6. AVONEX [Suspect]
     Indication: MULTIPLE SCLEROSIS
     Route: 030
     Dates: start: 20080201
  7. AMITRIPTYLINE HCL [Concomitant]

REACTIONS (2)
  - CONVULSION [None]
  - MENTAL DISORDER [None]
